FAERS Safety Report 4634895-3 (Version None)
Quarter: 2005Q2

REPORT INFORMATION
  Report Type: 
  Country: None (occurrence: None)
  Receive Date: 20050414
  Receipt Date: 20050330
  Transmission Date: 20051028
  Serious: Yes (Hospitalization)
  Sender: FDA-Public Use
  Company Number: 200510984JP

PATIENT
  Age: 55 Year
  Sex: Female
  Weight: 46 kg

DRUGS (11)
  1. ARAVA [Suspect]
     Indication: RHEUMATOID ARTHRITIS
     Route: 048
     Dates: start: 20040805, end: 20040820
  2. GASTER [Concomitant]
     Indication: PROPHYLAXIS
     Dosage: DOSE: 1 TABLET A DAY
     Route: 048
  3. FOSAMAC TABLETS [Concomitant]
     Indication: PROPHYLAXIS
     Dosage: DOSE: 1 TABLET A DAY
     Route: 048
  4. RHEUMATREX [Concomitant]
     Indication: RHEUMATOID ARTHRITIS
     Dosage: DOSE: 3 CAPSULES A WEEK
     Route: 048
     Dates: end: 20040805
  5. MOVER [Concomitant]
     Indication: RHEUMATOID ARTHRITIS
     Dosage: DOSE: 2 TABLETS A DAY
     Route: 048
     Dates: end: 20040805
  6. CYTOTEC [Concomitant]
     Indication: PROPHYLAXIS
     Dosage: DOSE: 2 TABLETS A DAY
     Route: 048
  7. SELBEX [Concomitant]
     Indication: PROPHYLAXIS
     Route: 048
  8. PEON [Concomitant]
     Indication: RHEUMATOID ARTHRITIS
     Dosage: DOSE: 2 TABLETS A DAY
     Route: 048
  9. CINAL [Concomitant]
     Indication: PROPHYLAXIS
     Dosage: DOSE: 2 TABLETS A DAY
     Route: 048
  10. PREDNISOLONE [Concomitant]
     Indication: RHEUMATOID ARTHRITIS
     Route: 048
  11. WARKMIN [Concomitant]
     Indication: PROPHYLAXIS
     Dosage: DOSE: 2 CAPSULES A DAY
     Route: 048

REACTIONS (10)
  - ALANINE AMINOTRANSFERASE INCREASED [None]
  - ASPARTATE AMINOTRANSFERASE INCREASED [None]
  - BLOOD ALKALINE PHOSPHATASE INCREASED [None]
  - BLOOD LACTATE DEHYDROGENASE INCREASED [None]
  - DRUG ERUPTION [None]
  - PLATELET COUNT DECREASED [None]
  - PROTEIN URINE PRESENT [None]
  - PYREXIA [None]
  - RED BLOOD CELL COUNT DECREASED [None]
  - WHITE BLOOD CELL COUNT DECREASED [None]
